FAERS Safety Report 13872075 (Version 2)
Quarter: 2017Q3

REPORT INFORMATION
  Report Type: Report from Study
  Country: US (occurrence: US)
  Receive Date: 20170816
  Receipt Date: 20170824
  Transmission Date: 20171127
  Serious: Yes (Death, Hospitalization, Other)
  Sender: FDA-Public Use
  Company Number: US-GILEAD-2017-0284002

PATIENT
  Age: 70 Year
  Sex: Male

DRUGS (12)
  1. METFORMIN [Concomitant]
     Active Substance: METFORMIN HYDROCHLORIDE
  2. ANORO ELLIPTA [Concomitant]
     Active Substance: UMECLIDINIUM BROMIDE\VILANTEROL TRIFENATATE
  3. TORSEMIDE. [Concomitant]
     Active Substance: TORSEMIDE
  4. POTASSIUM [Concomitant]
     Active Substance: POTASSIUM
  5. AMBRISENTAN [Suspect]
     Active Substance: AMBRISENTAN
     Indication: PRODUCT USED FOR UNKNOWN INDICATION
     Dosage: 10 MG, UNK
     Route: 065
     Dates: start: 20170621, end: 201706
  6. DORZOLAMIDE TIMOLOL [Concomitant]
     Active Substance: DORZOLAMIDE
  7. PANTOPRAZOLE [Concomitant]
     Active Substance: PANTOPRAZOLE
  8. COUMADIN [Concomitant]
     Active Substance: WARFARIN SODIUM
  9. HUMALOG [Concomitant]
     Active Substance: INSULIN LISPRO
  10. LOVASTATIN. [Concomitant]
     Active Substance: LOVASTATIN
  11. GLIMEPIRIDE. [Concomitant]
     Active Substance: GLIMEPIRIDE
  12. ADCIRCA [Concomitant]
     Active Substance: TADALAFIL

REACTIONS (4)
  - Death [Fatal]
  - Foot operation [Unknown]
  - Peripheral swelling [Unknown]
  - Fluid overload [Unknown]

NARRATIVE: CASE EVENT DATE: 20170811
